FAERS Safety Report 10983690 (Version 2)
Quarter: 2015Q2

REPORT INFORMATION
  Report Type: Spontaneous
  Country: BR (occurrence: BR)
  Receive Date: 20150403
  Receipt Date: 20150513
  Transmission Date: 20150821
  Serious: Yes (Other)
  Sender: FDA-Public Use
  Company Number: BR-PFIZER INC-2015115021

PATIENT
  Age: 61 Year
  Sex: Male

DRUGS (22)
  1. SIMVASTATIN. [Concomitant]
     Active Substance: SIMVASTATIN
     Dosage: 2 TABLETS (STRENGTH 10 MG), 1X/DAY
     Route: 048
  2. NICOTINE. [Concomitant]
     Active Substance: NICOTINE
     Dosage: 1 AMPOULE (STRENGTH 14 MG), 1X/DAY
     Route: 062
  3. SODIUM BICARBONATE. [Concomitant]
     Active Substance: SODIUM BICARBONATE
     Dosage: 1 TABLET (STRENGTH 500 MG), EVERY 8 HOURS
     Route: 048
  4. MAGNESIUM CARBONATE [Concomitant]
     Active Substance: MAGNESIUM CARBONATE
     Dosage: 1 TABLET (STRENGHT 250 MG), EVERY 8 HOURS
     Route: 048
  5. EPOETIN BETA [Concomitant]
     Active Substance: ERYTHROPOIETIN
     Dosage: 1 AMPOULE (STRENGTH 10000 IU/ML), BY MEDICAL CRITERIA
     Route: 058
  6. ZYVOX [Suspect]
     Active Substance: LINEZOLID
     Indication: PYREXIA
     Dosage: 600 MG, EVERY 12 HOURS
     Route: 042
     Dates: start: 20150220, end: 20150226
  7. PREDNISONE. [Concomitant]
     Active Substance: PREDNISONE
     Dosage: 1 TABLET (STRENGTH 5 MG), 1X/DAY
     Route: 048
  8. DIPIRONA [Concomitant]
     Active Substance: METAMIZOLE
     Dosage: 1 TABLET (STRENGTH 500 MG), AS NEEDED
     Route: 048
  9. ACETYLSALICYLIC ACID [Concomitant]
     Active Substance: ASPIRIN
     Dosage: 1 TABLET (STRENGTH 100 MG), 1X/DAY
     Route: 048
  10. SODIUM BICARBONATE. [Concomitant]
     Active Substance: SODIUM BICARBONATE
     Dosage: 1 LITTLE BOTTLE, EVERY 8 HOURS
     Route: 048
  11. SODIUM BICARBONATE. [Concomitant]
     Active Substance: SODIUM BICARBONATE
     Dosage: 80 ML (STRENGTH 8.4% IN 250 ML), IN THE MOMENT
     Route: 042
  12. AMYLASE/LIPASE/PROTEASE [Concomitant]
     Dosage: 5 CAPSULES, EVERY 8 HOURS
     Route: 048
  13. CARVEDILOL. [Concomitant]
     Active Substance: CARVEDILOL
     Dosage: 6.25 MG, EVERY 12 HOURS
     Route: 048
  14. SIROLIMUS. [Concomitant]
     Active Substance: SIROLIMUS
     Dosage: 2 TABLETS (STRENGTH 1 MG), 1X/DAY
     Route: 048
  15. TACROLIMUS. [Concomitant]
     Active Substance: TACROLIMUS
     Dosage: 4 CAPSULES (STRENGTH 1MG), EVERY 12 HOURS
     Route: 048
  16. CALCIUM POLYSTYRENE SULFONATE [Concomitant]
     Active Substance: CALCIUM POLYSTYRENE SULFONATE
     Dosage: 1 ENVELOPE (3.3 MEQ/G), EVERY 8 HOURS
     Route: 048
  17. ALUMINUM HYDROXIDE. [Concomitant]
     Active Substance: ALUMINUM HYDROXIDE
     Dosage: 10 ML (STRENGTH 62 MG/ML), AS NEEDED
     Route: 048
  18. FENOTEROL [Concomitant]
     Active Substance: FENOTEROL
     Dosage: 8 DROPS (STRENGTH 5 MG/ML), EVERY 6 HOURS
     Route: 055
  19. METOCLOPRAMIDE. [Concomitant]
     Active Substance: METOCLOPRAMIDE
     Dosage: 1 AMPOULE, AS NEEDED
     Route: 042
  20. EPOETIN ALFA [Concomitant]
     Active Substance: ERYTHROPOIETIN
     Dosage: 1 AMPOULE (STRENGTH 10000 IU/ML), BY MEDICAL CRITERIA
     Route: 058
  21. HEPARIN [Concomitant]
     Active Substance: HEPARIN SODIUM
     Dosage: 5000 IU, EVERY 12 HOURS
     Route: 058
  22. MEROPENEM. [Concomitant]
     Active Substance: MEROPENEM
     Dosage: 1 AMPOULE (STRENGTH 1000 MG), EVERY 8 HOURS
     Route: 042

REACTIONS (1)
  - Bone marrow toxicity [Recovered/Resolved]

NARRATIVE: CASE EVENT DATE: 20150221
